FAERS Safety Report 11519972 (Version 1)
Quarter: 2015Q3

REPORT INFORMATION
  Report Type: Spontaneous
  Country: US (occurrence: US)
  Receive Date: 20150918
  Receipt Date: 20150918
  Transmission Date: 20151125
  Serious: No
  Sender: FDA-Public Use
  Company Number: US-RB-067887-14

PATIENT

DRUGS (1)
  1. MUCINEX MAXIMUM STRENGTH [Suspect]
     Active Substance: GUAIFENESIN
     Indication: UPPER-AIRWAY COUGH SYNDROME
     Dosage: 1200MG. PRODUCT LAST USED ON: 27/JUL/2014; AMOUNT USED: 28 TABLETS.,BID
     Route: 065
     Dates: start: 20140714

REACTIONS (3)
  - Renal pain [Recovering/Resolving]
  - Incorrect drug administration duration [Recovering/Resolving]
  - Costovertebral angle tenderness [Recovering/Resolving]

NARRATIVE: CASE EVENT DATE: 20140727
